FAERS Safety Report 5193037-9 (Version None)
Quarter: 2006Q4

REPORT INFORMATION
  Report Type: 
  Country: None (occurrence: None)
  Receive Date: 20061228
  Receipt Date: 20060307
  Transmission Date: 20070319
  Serious: No
  Sender: FDA-Public Use
  Company Number: US-GLAXOSMITHKLINE-A0596485A

PATIENT
  Age: 80 Year
  Sex: Male

DRUGS (11)
  1. AVODART [Suspect]
     Indication: BENIGN PROSTATIC HYPERPLASIA
     Dosage: .5MG PER DAY
     Route: 048
     Dates: start: 20040101
  2. NEURONTIN [Concomitant]
  3. PRAVACHOL [Concomitant]
  4. HYDROCHLOROTHIAZIDE [Concomitant]
  5. NORVASC [Concomitant]
  6. PERCOCET [Concomitant]
  7. MORPHINE [Concomitant]
  8. CELEBREX [Concomitant]
  9. ASPIRIN [Concomitant]
  10. ALLOPURINOL SODIUM [Concomitant]
  11. UNKNOWN MEDICATION [Concomitant]

REACTIONS (4)
  - BREAST ENLARGEMENT [None]
  - BREAST MASS [None]
  - BREAST TENDERNESS [None]
  - DRUG INEFFECTIVE [None]
